FAERS Safety Report 20373092 (Version 3)
Quarter: 2022Q1

REPORT INFORMATION
  Report Type: Spontaneous
  Country: PT (occurrence: PT)
  Receive Date: 20220125
  Receipt Date: 20220219
  Transmission Date: 20220423
  Serious: Yes (Hospitalization, Other)
  Sender: FDA-Public Use
  Company Number: PT-MLMSERVICE-20220107-3307400-1

PATIENT
  Age: 80 Year
  Sex: Female

DRUGS (4)
  1. OLANZAPINE [Suspect]
     Active Substance: OLANZAPINE
     Indication: Mania
     Dosage: UNK (HIGHER DOSES)
     Route: 065
  2. OLANZAPINE [Suspect]
     Active Substance: OLANZAPINE
     Indication: Bipolar I disorder
  3. LITHIUM [Suspect]
     Active Substance: LITHIUM
     Indication: Bipolar I disorder
     Dosage: 600 MILLIGRAM, ONCE A DAY
     Route: 065
  4. LITHIUM [Suspect]
     Active Substance: LITHIUM
     Indication: Affective disorder
     Dosage: 400 MILLIGRAM, ONCE A DAY
     Route: 065

REACTIONS (5)
  - Pleurothotonus [Unknown]
  - Mania [Unknown]
  - Dystonia [Recovered/Resolved]
  - Loss of personal independence in daily activities [Unknown]
  - Treatment noncompliance [Unknown]
